FAERS Safety Report 9526609 (Version 1)
Quarter: 2013Q3

REPORT INFORMATION
  Report Type: Spontaneous
  Country: IT (occurrence: IT)
  Receive Date: 20130916
  Receipt Date: 20130916
  Transmission Date: 20140515
  Serious: Yes (Hospitalization, Other)
  Sender: FDA-Public Use
  Company Number: PHHY2013IT098083

PATIENT
  Age: 52 Year
  Sex: Male

DRUGS (8)
  1. METHOTREXATE [Suspect]
     Indication: RHEUMATOID ARTHRITIS
     Dosage: 2.5 MG, QID ONCE A WEEK
  2. PREDNISONE [Concomitant]
     Dosage: 7.5 MG, EVERY 15 DAYS
  3. CALCIUM [Concomitant]
  4. CHOLECALCIFEROL [Concomitant]
  5. FOLIC ACID [Concomitant]
     Dosage: 15 MG, BID ONCE A WEEK
  6. ROSUVASTATIN [Concomitant]
     Dosage: 10 MG, QD
  7. PANTOPRAZOLE [Concomitant]
     Dosage: 20 MG, QD
  8. ALENDRONATE [Concomitant]
     Dosage: 70 MG, QW

REACTIONS (8)
  - General physical health deterioration [Unknown]
  - Rheumatoid arthritis [Unknown]
  - Stomatitis [Recovered/Resolved]
  - Oral disorder [Recovered/Resolved]
  - Oral mucosal erythema [Recovered/Resolved]
  - Oral pain [Recovered/Resolved]
  - Mastication disorder [Recovered/Resolved]
  - Oropharyngeal plaque [Recovered/Resolved]
